FAERS Safety Report 5842197-2 (Version None)
Quarter: 2008Q3

REPORT INFORMATION
  Report Type: 
  Country: None (occurrence: None)
  Receive Date: 20080812
  Receipt Date: 20080806
  Transmission Date: 20090109
  Serious: Yes (Other)
  Sender: FDA-Public Use
  Company Number: GB-JNJCH-2008020623

PATIENT
  Sex: Male

DRUGS (1)
  1. NICORETTE PATCH 10 MG [Suspect]
     Indication: DRUG USE FOR UNKNOWN INDICATION
     Dosage: TEXT:10MG UNSPECIFIED
     Route: 062

REACTIONS (4)
  - CONSTIPATION [None]
  - DEPRESSION [None]
  - DIARRHOEA [None]
  - OVERDOSE [None]
